FAERS Safety Report 11191823 (Version 1)
Quarter: 2015Q2

REPORT INFORMATION
  Report Type: Spontaneous
  Country: IT (occurrence: None)
  Receive Date: 20150612
  Receipt Date: 20150612
  Transmission Date: 20150821
  Serious: Yes (Life-Threatening, Other)
  Sender: FDA-Public Use
  Company Number: 2015JUB00162

PATIENT
  Age: 55 Year
  Sex: Female

DRUGS (4)
  1. METHYLPREDNISOLONE (METHYLPREDNISOLONE) UNKNOWN [Suspect]
     Active Substance: METHYLPREDNISOLONE
     Indication: MULTIPLE SCLEROSIS RELAPSE
  2. SATIVEX (NABIXIMOLS) [Suspect]
     Active Substance: NABIXIMOLS
     Indication: MUSCLE SPASTICITY
     Dosage: 10 DOSAGE UNITS, INSUFFLATION
  3. BETA-INTERFERON [Concomitant]
     Active Substance: INTERFERON BETA
  4. BACLOFEN (BACLOFEN) UNKNOWN [Suspect]
     Active Substance: BACLOFEN
     Indication: MUSCLE SPASTICITY

REACTIONS (3)
  - Suicidal ideation [None]
  - Affective disorder [None]
  - Psychotic disorder [None]
